FAERS Safety Report 19576605 (Version 1)
Quarter: 2021Q3

REPORT INFORMATION
  Report Type: Spontaneous
  Country: US (occurrence: US)
  Receive Date: 20210719
  Receipt Date: 20210719
  Transmission Date: 20211014
  Serious: Yes (Other)
  Sender: FDA-Public Use
  Company Number: None

PATIENT
  Age: 84 Year
  Sex: Female
  Weight: 55.8 kg

DRUGS (10)
  1. HCTZ [Concomitant]
     Active Substance: HYDROCHLOROTHIAZIDE
  2. IBRANCE [Suspect]
     Active Substance: PALBOCICLIB
     Indication: BREAST CANCER
     Route: 048
     Dates: start: 20210223
  3. SINGULAIR [Concomitant]
     Active Substance: MONTELUKAST SODIUM
  4. ADVIL [Concomitant]
     Active Substance: IBUPROFEN
  5. ACIPHEX [Concomitant]
     Active Substance: RABEPRAZOLE SODIUM
  6. METOPROLOL. [Concomitant]
     Active Substance: METOPROLOL
  7. CLARITIN [Concomitant]
     Active Substance: LORATADINE
  8. CANDESARTAN. [Concomitant]
     Active Substance: CANDESARTAN
  9. WELLBUTRIN [Concomitant]
     Active Substance: BUPROPION HYDROCHLORIDE
  10. LETROZOLE. [Concomitant]
     Active Substance: LETROZOLE

REACTIONS (2)
  - Alopecia [None]
  - Hair texture abnormal [None]

NARRATIVE: CASE EVENT DATE: 20210719
